FAERS Safety Report 26195042 (Version 1)
Quarter: 2025Q4

REPORT INFORMATION
  Report Type: Spontaneous
  Country: US (occurrence: None)
  Receive Date: 20251224
  Receipt Date: 20251224
  Transmission Date: 20260118
  Serious: Yes (Hospitalization, Other)
  Sender: ENDO
  Company Number: US-ENDO USA, INC.-2025-002455

PATIENT
  Age: 70 Year
  Sex: Male

DRUGS (5)
  1. BUPRENORPHINE HYDROCHLORIDE [Suspect]
     Active Substance: BUPRENORPHINE HYDROCHLORIDE
     Indication: Drug withdrawal syndrome
     Dosage: UNK UNKNOWN, UNKNOWN (HIGH DOSE - HOSPITAL DAY 5 TO 9)
     Route: 065
  2. UNSPECIFIED INGREDIENT [Concomitant]
     Active Substance: UNSPECIFIED INGREDIENT
     Indication: Pneumonia aspiration
     Dosage: UNK UNKNOWN, UNKNOWN
     Route: 065
  3. HEROIN [Concomitant]
     Active Substance: DIAMORPHINE
     Indication: Product used for unknown indication
     Dosage: UNK UNKNOWN, DAILY (TYPICALLY 10 BAGS)
     Route: 065
  4. COCAINE [Concomitant]
     Active Substance: COCAINE
     Indication: Product used for unknown indication
     Dosage: UNK UNKNOWN, UNKNOWN
     Route: 065
  5. UNSPECIFIED INGREDIENT [Concomitant]
     Active Substance: UNSPECIFIED INGREDIENT
     Indication: Product used for unknown indication
     Dosage: UNK UNKNOWN, UNKNOWN
     Route: 065

REACTIONS (4)
  - Delirium [Recovered/Resolved]
  - Hypernatraemia [Recovered/Resolved]
  - Cerebral ventricle dilatation [Unknown]
  - Off label use [Recovered/Resolved]
